FAERS Safety Report 4984156-8 (Version None)
Quarter: 2006Q2

REPORT INFORMATION
  Report Type: 
  Country: None (occurrence: None)
  Receive Date: 20060427
  Receipt Date: 20060419
  Transmission Date: 20061013
  Serious: Yes (Other)
  Sender: FDA-Public Use
  Company Number: PHBS2006IT05830

PATIENT
  Sex: Female

DRUGS (2)
  1. LIORESAL [Suspect]
     Route: 048
  2. ENALAPRIL MALEATE [Concomitant]
     Route: 065

REACTIONS (1)
  - HYPERTENSION [None]
